FAERS Safety Report 4366872-4 (Version None)
Quarter: 2004Q2

REPORT INFORMATION
  Report Type: 
  Country: None (occurrence: None)
  Receive Date: 20040526
  Receipt Date: 20040526
  Transmission Date: 20050107
  Serious: Yes (Hospitalization)
  Sender: FDA-Public Use
  Company Number: None

PATIENT
  Sex: Male
  Weight: 74 kg

DRUGS (6)
  1. ZOMETA [Suspect]
     Indication: PROSTATE CANCER
     Dosage: 4 MG
     Dates: start: 20031023
  2. LUPRON [Suspect]
     Dosage: 22.5 MG
     Dates: start: 20031031, end: 20040115
  3. METOPROLOL TARTRATE [Concomitant]
  4. NITROPATCH [Concomitant]
  5. NITROSE [Concomitant]
  6. ASPIRIN [Concomitant]

REACTIONS (8)
  - DISSEMINATED INTRAVASCULAR COAGULATION [None]
  - HYPERCALCAEMIA [None]
  - MALIGNANT NEOPLASM PROGRESSION [None]
  - METASTASES TO BONE MARROW [None]
  - PROSTATE CANCER [None]
  - RHABDOMYOLYSIS [None]
  - THROMBOCYTOPENIA [None]
  - WEIGHT DECREASED [None]
